FAERS Safety Report 9237394 (Version 3)
Quarter: 2013Q3

REPORT INFORMATION
  Report Type: Spontaneous
  Country: US (occurrence: US)
  Receive Date: 20130417
  Receipt Date: 20130716
  Transmission Date: 20140515
  Serious: No
  Sender: FDA-Public Use
  Company Number: US-PFIZER INC-2013116590

PATIENT
  Age: 86 Year
  Sex: Male
  Weight: 72.56 kg

DRUGS (8)
  1. TRIAZOLAM [Suspect]
     Indication: INSOMNIA
     Dosage: 0.25 MG, ONCE A DAY
     Route: 048
  2. TRIAZOLAM [Suspect]
     Dosage: 0.25 MG, EVERY NIGHT (SUPPLEMENT IT WITH AN ADDITIONAL HALF A TABLET AND THEN MAYBE ANOTHER QUARTER)
  3. TRIAZOLAM [Suspect]
     Dosage: UNK
  4. LISINOPRIL [Concomitant]
     Indication: HYPERTENSION
     Dosage: UNK
  5. HYDROCHLOROTHIAZIDE [Concomitant]
     Indication: HYPERTENSION
     Dosage: 12.5 MG, UNK
  6. LOVASTATIN [Concomitant]
     Indication: BLOOD CHOLESTEROL INCREASED
     Dosage: UNK
  7. BETIMOL [Concomitant]
     Indication: INTRAOCULAR PRESSURE TEST ABNORMAL
     Dosage: UNK, ONCE A DAY
  8. LUMIGAN [Concomitant]
     Indication: INTRAOCULAR PRESSURE TEST ABNORMAL
     Dosage: UNK, ONCE A DAY

REACTIONS (4)
  - Drug ineffective [Unknown]
  - Hearing impaired [Unknown]
  - Headache [Unknown]
  - Lethargy [Unknown]
